FAERS Safety Report 13613436 (Version 2)
Quarter: 2017Q2

REPORT INFORMATION
  Report Type: Report from Study
  Country: CN (occurrence: CN)
  Receive Date: 20170605
  Receipt Date: 20170619
  Transmission Date: 20170830
  Serious: Yes (Other)
  Sender: FDA-Public Use
  Company Number: PHHY2016CN168288

PATIENT
  Age: 44 Year
  Sex: Female
  Weight: 53 kg

DRUGS (6)
  1. TYKERB [Suspect]
     Active Substance: LAPATINIB DITOSYLATE
     Indication: BREAST CANCER
     Dosage: 1000 MG, QD (4 TABLETS QD)
     Route: 048
     Dates: start: 20160824
  2. TRASTUZUMAB [Concomitant]
     Active Substance: TRASTUZUMAB
     Indication: PRODUCT USED FOR UNKNOWN INDICATION
     Dosage: 2 MG/KG, QW
     Route: 042
     Dates: start: 20160824
  3. PACLITAXEL. [Suspect]
     Active Substance: PACLITAXEL
     Indication: PRODUCT USED FOR UNKNOWN INDICATION
     Dosage: 120 MG, QW
     Route: 042
     Dates: start: 20160824, end: 201705
  4. LOPERAMIDE [Concomitant]
     Active Substance: LOPERAMIDE
     Indication: PRODUCT USED FOR UNKNOWN INDICATION
     Dosage: UNK
     Route: 048
     Dates: start: 20160824
  5. HERCEPTIN [Concomitant]
     Active Substance: TRASTUZUMAB
     Indication: PRODUCT USED FOR UNKNOWN INDICATION
     Dosage: UNK UNK, BID
     Route: 065
  6. CARBOPLATIN. [Suspect]
     Active Substance: CARBOPLATIN
     Indication: PRODUCT USED FOR UNKNOWN INDICATION
     Dosage: 250 MG, QW
     Route: 042
     Dates: start: 20160824, end: 201705

REACTIONS (11)
  - Pruritus [Not Recovered/Not Resolved]
  - Malignant neoplasm progression [Not Recovered/Not Resolved]
  - Diarrhoea [Recovered/Resolved with Sequelae]
  - Deafness [Recovered/Resolved]
  - Metastases to central nervous system [Unknown]
  - Gastritis [Not Recovered/Not Resolved]
  - Dry skin [Recovered/Resolved]
  - Hypoaesthesia [Recovered/Resolved]
  - Pollakiuria [Recovered/Resolved]
  - Urethral pain [Recovered/Resolved]
  - Rash generalised [Recovering/Resolving]

NARRATIVE: CASE EVENT DATE: 20160824
